FAERS Safety Report 16531761 (Version 4)
Quarter: 2019Q4

REPORT INFORMATION
  Report Type: Spontaneous
  Country: HU (occurrence: HU)
  Receive Date: 20190705
  Receipt Date: 20191018
  Transmission Date: 20200122
  Serious: Yes (Life-Threatening, Hospitalization)
  Sender: FDA-Public Use
  Company Number: HU-PFIZER INC-2019282103

PATIENT
  Age: 66 Year
  Sex: Female

DRUGS (9)
  1. METHYLPREDNISOLONE. [Suspect]
     Active Substance: METHYLPREDNISOLONE
     Indication: RASH
     Dosage: 20 MG, DAILY FOR 3 DAYS
     Route: 048
     Dates: start: 20181114
  2. METHYLPREDNISOLONE. [Suspect]
     Active Substance: METHYLPREDNISOLONE
     Dosage: 60 MG, DAILY FOR 3 DAYS
     Route: 048
  3. METHYLPREDNISOLONE SODIUM SUCCINATE. [Suspect]
     Active Substance: METHYLPREDNISOLONE SODIUM SUCCINATE
     Indication: RASH
     Dosage: 125 MG, UNK
     Route: 051
     Dates: end: 20181207
  4. METHYLPREDNISOLONE. [Suspect]
     Active Substance: METHYLPREDNISOLONE
     Dosage: UNK
     Dates: end: 20190121
  5. METHYLPREDNISOLONE. [Suspect]
     Active Substance: METHYLPREDNISOLONE
     Dosage: 80 MG, UNK  FOR 2 DAYS
     Route: 048
     Dates: start: 20181120
  6. ASA [Suspect]
     Active Substance: ASPIRIN
     Dosage: 100 MG, DAILY, 4 TIMES IN TOTAL
     Route: 048
     Dates: start: 20181109, end: 20181119
  7. CLARITHROMYCIN. [Suspect]
     Active Substance: CLARITHROMYCIN
     Dosage: 500 MG
     Route: 048
     Dates: start: 20181120, end: 20181123
  8. MOXIFLOXACIN. [Suspect]
     Active Substance: MOXIFLOXACIN
     Dosage: 400 MG, DAILY
     Route: 042
     Dates: start: 20181123, end: 20181127
  9. PENTAGLOBIN [Suspect]
     Active Substance: HUMAN IMMUNOGLOBULIN G
     Dosage: 0.5 G/KG
     Route: 042
     Dates: start: 20181204, end: 20181207

REACTIONS (20)
  - Necrosis [Unknown]
  - Purpura [Unknown]
  - Disseminated intravascular coagulation [Unknown]
  - Blood immunoglobulin A increased [Unknown]
  - Oropharyngeal plaque [Unknown]
  - Oedema peripheral [Unknown]
  - Hiatus hernia [Unknown]
  - Blood creatine phosphokinase increased [Unknown]
  - Escherichia infection [Recovering/Resolving]
  - Streptococcal infection [Unknown]
  - Cholelithiasis [Unknown]
  - Beta 2 microglobulin increased [Unknown]
  - Lymphadenopathy [Unknown]
  - Blood lactate dehydrogenase increased [Unknown]
  - Rash [Unknown]
  - Staphylococcal infection [Not Recovered/Not Resolved]
  - Vasculitis necrotising [Recovered/Resolved with Sequelae]
  - Blood blister [Unknown]
  - Thrombocytosis [Unknown]
  - Renal function test abnormal [Unknown]

NARRATIVE: CASE EVENT DATE: 201811
